FAERS Safety Report 23059476 (Version 2)
Quarter: 2024Q1

REPORT INFORMATION
  Report Type: Spontaneous
  Country: US (occurrence: US)
  Receive Date: 20231012
  Receipt Date: 20240213
  Transmission Date: 20240409
  Serious: No
  Sender: FDA-Public Use
  Company Number: US-GLAXOSMITHKLINE-US2023AMR137237

PATIENT
  Sex: Female
  Weight: 76.644 kg

DRUGS (2)
  1. ZEJULA [Suspect]
     Active Substance: NIRAPARIB
     Indication: Breast cancer female
     Dosage: UNK
  2. ZEJULA [Suspect]
     Active Substance: NIRAPARIB
     Dosage: 100 MG, QD

REACTIONS (3)
  - Urine odour abnormal [Unknown]
  - Off label use [Unknown]
  - Intentional product use issue [Unknown]
